FAERS Safety Report 12480470 (Version 1)
Quarter: 2016Q2

REPORT INFORMATION
  Report Type: Spontaneous
  Country: US (occurrence: None)
  Receive Date: 20160617
  Receipt Date: 20160617
  Transmission Date: 20160815
  Serious: No
  Sender: FDA-Public Use
  Company Number: None

PATIENT
  Age: 26 Year
  Sex: Female
  Weight: 52.16 kg

DRUGS (6)
  1. PAU D^ARCO [Concomitant]
  2. BUPROPION EXTENDED RELEASE 300, 300 MG [Suspect]
     Active Substance: BUPROPION
     Indication: DEPRESSION
     Dosage: 1 TABLET ONCE A DAY
     Route: 048
     Dates: start: 20160413
  3. DEPO-PREVARA INJECTIONS [Concomitant]
  4. CRANBERRY. [Concomitant]
     Active Substance: CRANBERRY
  5. CALCIUM [Concomitant]
     Active Substance: CALCIUM
  6. PROBIOTIC [Concomitant]
     Active Substance: PROBIOTICS NOS

REACTIONS (2)
  - Vomiting [None]
  - Parosmia [None]

NARRATIVE: CASE EVENT DATE: 20160615
